FAERS Safety Report 7007808-7 (Version None)
Quarter: 2010Q3

REPORT INFORMATION
  Report Type: 
  Country: None (occurrence: None)
  Receive Date: 20100922
  Receipt Date: 20100916
  Transmission Date: 20110219
  Serious: Yes (Death, Hospitalization)
  Sender: FDA-Public Use
  Company Number: JP-BRISTOL-MYERS SQUIBB COMPANY-15284540

PATIENT
  Age: 84 Year
  Sex: Male

DRUGS (1)
  1. MITOMYCIN [Suspect]
     Indication: BLADDER CANCER
     Route: 043
     Dates: start: 20060901

REACTIONS (1)
  - INTERSTITIAL LUNG DISEASE [None]
